FAERS Safety Report 4673633-5 (Version None)
Quarter: 2005Q2

REPORT INFORMATION
  Report Type: 
  Country: None (occurrence: None)
  Receive Date: 20050525
  Receipt Date: 20050425
  Transmission Date: 20051028
  Serious: Yes (Death)
  Sender: FDA-Public Use
  Company Number: 2005AP02546

PATIENT
  Age: 77 Year
  Sex: Female

DRUGS (7)
  1. ACCOLATE [Suspect]
     Indication: ASTHMA
     Route: 048
     Dates: start: 20041112, end: 20050405
  2. THEO-DUR [Concomitant]
     Indication: ASTHMA
     Route: 048
     Dates: start: 19990101
  3. HALCION [Concomitant]
     Indication: INSOMNIA
     Route: 048
     Dates: start: 19990101
  4. ONEALFA [Concomitant]
     Indication: OSTEOPOROSIS
     Route: 048
     Dates: start: 19991201
  5. MUCODYNE [Concomitant]
     Indication: ASTHMA
     Route: 048
     Dates: start: 20000801
  6. SILECE [Concomitant]
     Indication: INSOMNIA
     Dates: start: 20010201
  7. NORVASC [Concomitant]
     Indication: HYPERTENSION
     Route: 048

REACTIONS (9)
  - ASCITES [None]
  - CHOLELITHIASIS [None]
  - HEART RATE DECREASED [None]
  - HEPATIC ATROPHY [None]
  - HEPATITIS [None]
  - LIVER DISORDER [None]
  - PLEURAL EFFUSION [None]
  - RESPIRATORY ARREST [None]
  - RESTLESSNESS [None]
